FAERS Safety Report 15154804 (Version 5)
Quarter: 2018Q4

REPORT INFORMATION
  Report Type: Spontaneous
  Country: HU (occurrence: HU)
  Receive Date: 20180717
  Receipt Date: 20181205
  Transmission Date: 20190204
  Serious: Yes (Hospitalization, Other)
  Sender: FDA-Public Use
  Company Number: HU-GLAXOSMITHKLINE-HU2018125260

PATIENT
  Age: 71 Year
  Sex: Female

DRUGS (14)
  1. DICLOFENAC [Suspect]
     Active Substance: DICLOFENAC
     Indication: PRODUCT USED FOR UNKNOWN INDICATION
     Dosage: UNK
     Route: 041
  2. METFORMIN [Concomitant]
     Active Substance: METFORMIN HYDROCHLORIDE
     Indication: PRODUCT USED FOR UNKNOWN INDICATION
     Dosage: 1000 MG, BID
     Route: 065
  3. NEBIVOLOL. [Suspect]
     Active Substance: NEBIVOLOL
     Indication: PRODUCT USED FOR UNKNOWN INDICATION
     Dosage: 5 MG, QD
     Route: 065
  4. PERINDOPRIL + INDAPAMIDE [Concomitant]
     Indication: PRODUCT USED FOR UNKNOWN INDICATION
     Dosage: UNK10/2.5/5
     Route: 065
  5. ACETYLSALICYLIC ACID [Suspect]
     Active Substance: ASPIRIN
     Indication: VASCULAR ENCEPHALOPATHY
  6. LISINOPRIL. [Suspect]
     Active Substance: LISINOPRIL
     Indication: PRODUCT USED FOR UNKNOWN INDICATION
     Dosage: 5 MG, QD IN THE MORNING
     Route: 065
  7. ROSUVASTATIN. [Concomitant]
     Active Substance: ROSUVASTATIN
     Indication: ACUTE CORONARY SYNDROME
     Dosage: 40 MG, QD
     Route: 065
  8. CLOPIDOGREL [Concomitant]
     Active Substance: CLOPIDOGREL BISULFATE
     Dosage: 75 MG, QD
     Route: 065
  9. AMLODIPINE [Concomitant]
     Active Substance: AMLODIPINE BESYLATE
     Indication: PRODUCT USED FOR UNKNOWN INDICATION
     Dosage: 5 MG, QD IN THE EVENING
     Route: 065
  10. ACETYLSALICYLIC ACID [Suspect]
     Active Substance: ASPIRIN
     Indication: ACUTE CORONARY SYNDROME
     Dosage: 100 MG, QD
     Route: 065
  11. BISOPROLOL [Suspect]
     Active Substance: BISOPROLOL
     Indication: PRODUCT USED FOR UNKNOWN INDICATION
     Dosage: 5 MG, QD
     Route: 065
  12. METFORMIN [Concomitant]
     Active Substance: METFORMIN HYDROCHLORIDE
     Dosage: 2000 MG, QD
     Route: 065
  13. ESOMEPRAZOLE. [Concomitant]
     Active Substance: ESOMEPRAZOLE MAGNESIUM
     Indication: PRODUCT USED FOR UNKNOWN INDICATION
     Dosage: 40 MG, QD
     Route: 065
  14. CLOPIDOGREL [Concomitant]
     Active Substance: CLOPIDOGREL BISULFATE
     Indication: PRODUCT USED FOR UNKNOWN INDICATION
     Dosage: 40 MG, UNK
     Route: 065

REACTIONS (27)
  - Acute myocardial infarction [Unknown]
  - Pneumonia [Recovered/Resolved]
  - Vascular encephalopathy [Unknown]
  - Cardiac disorder [Unknown]
  - Pyrexia [Unknown]
  - Sinus rhythm [Not Recovered/Not Resolved]
  - Ventricular extrasystoles [Unknown]
  - Oedema peripheral [Unknown]
  - Breath sounds abnormal [Unknown]
  - Arteriosclerosis [Unknown]
  - Type 2 diabetes mellitus [Unknown]
  - Abdominal discomfort [Unknown]
  - Tachycardia [Unknown]
  - Non-Hodgkin^s lymphoma [Unknown]
  - Pulmonary hypertension [Unknown]
  - Supraventricular extrasystoles [Unknown]
  - Chest pain [Unknown]
  - Transient ischaemic attack [Unknown]
  - Chest discomfort [Unknown]
  - Pericardial effusion [Unknown]
  - Pleural effusion [Unknown]
  - Hypertension [Unknown]
  - Chronic obstructive pulmonary disease [Unknown]
  - Glycosylated haemoglobin increased [Unknown]
  - Atrial fibrillation [Unknown]
  - Dyspnoea exertional [Unknown]
  - Condition aggravated [Unknown]

NARRATIVE: CASE EVENT DATE: 20171204
